FAERS Safety Report 9196275 (Version 2)
Quarter: 2013Q3

REPORT INFORMATION
  Report Type: Spontaneous
  Country: JP (occurrence: JP)
  Receive Date: 20130328
  Receipt Date: 20130723
  Transmission Date: 20140515
  Serious: Yes (Other)
  Sender: FDA-Public Use
  Company Number: JP-JNJFOC-20130316136

PATIENT
  Age: 8 Decade
  Sex: Female

DRUGS (2)
  1. TRAMCET [Suspect]
     Indication: BACK PAIN
     Dosage: 8 TABLETS PER DAY, 4 TIMES DAILY??2 DF X 4 PER 1 DAY
     Route: 048
  2. FENTOS TAPE [Concomitant]
     Indication: PAIN
     Route: 062

REACTIONS (2)
  - Gastric cancer [Unknown]
  - Therapeutic response decreased [Unknown]
